FAERS Safety Report 23506238 (Version 1)
Quarter: 2024Q1

REPORT INFORMATION
  Report Type: Spontaneous
  Country: None (occurrence: US)
  Receive Date: 20240209
  Receipt Date: 20240209
  Transmission Date: 20240409
  Serious: No
  Sender: FDA-Public Use
  Company Number: US-SERB S.A.S.-2152914

PATIENT
  Age: 49 Year
  Sex: Male

DRUGS (5)
  1. CYANOKIT [Suspect]
     Active Substance: HYDROXOCOBALAMIN
     Indication: Hypotension
  2. VASOPRESSIN [Concomitant]
     Active Substance: VASOPRESSIN
  3. NOREPINEPHRINE [Concomitant]
     Active Substance: NOREPINEPHRINE
  4. AMIODARONE HYDROCHLORIDE [Concomitant]
     Active Substance: AMIODARONE HYDROCHLORIDE
  5. DOBUTAMINE [Concomitant]
     Active Substance: DOBUTAMINE HYDROCHLORIDE

REACTIONS (2)
  - Drug-device interaction [Unknown]
  - Product use in unapproved indication [Unknown]
